FAERS Safety Report 19228086 (Version 2)
Quarter: 2021Q3

REPORT INFORMATION
  Report Type: Spontaneous
  Country: PT (occurrence: PT)
  Receive Date: 20210506
  Receipt Date: 20210730
  Transmission Date: 20211014
  Serious: Yes (Hospitalization, Other)
  Sender: FDA-Public Use
  Company Number: NVSC2021PT095983

PATIENT
  Age: 55 Year
  Sex: Female

DRUGS (4)
  1. CLOPIDOGREL [Concomitant]
     Active Substance: CLOPIDOGREL BISULFATE
     Indication: ANTIPLATELET THERAPY
     Dosage: UNK
     Route: 065
  2. DICLOFENAC [Suspect]
     Active Substance: DICLOFENAC
     Indication: PRODUCT USED FOR UNKNOWN INDICATION
     Dosage: 75 MG, UNKNOWN
     Route: 048
  3. ACETYLSALICYLIC ACID [Concomitant]
     Active Substance: ASPIRIN
     Indication: ANTIPLATELET THERAPY
     Dosage: UNK
     Route: 065
  4. AMOXICILLIN TRIHYDRATE,POTASSIUM CLAVULANATE [Suspect]
     Active Substance: AMOXICILLIN\CLAVULANATE POTASSIUM
     Indication: RESPIRATORY TRACT INFECTION
     Dosage: 875/125 MG (STRENGTH: AMOXICILLIN TRIHYDRATE 875 MG, POTASSIUM CLAVULANATE 125 MG)
     Route: 065

REACTIONS (20)
  - Loss of consciousness [Unknown]
  - Dyspnoea [Recovering/Resolving]
  - Eyelid oedema [Unknown]
  - Drug hypersensitivity [Recovering/Resolving]
  - Pruritus [Recovering/Resolving]
  - Syncope [Unknown]
  - Chest pain [Recovered/Resolved]
  - Erythema [Recovering/Resolving]
  - Kounis syndrome [Recovered/Resolved]
  - Face oedema [Unknown]
  - Skin lesion [Recovering/Resolving]
  - Lip oedema [Recovering/Resolving]
  - Tongue oedema [Unknown]
  - Troponin increased [Recovered/Resolved]
  - Anaphylactic reaction [Recovering/Resolving]
  - Wheezing [Unknown]
  - Rash maculo-papular [Recovering/Resolving]
  - Hypotension [Recovering/Resolving]
  - Abdominal pain [Unknown]
  - Vomiting [Unknown]
